FAERS Safety Report 18530955 (Version 1)
Quarter: 2020Q4

REPORT INFORMATION
  Report Type: Spontaneous
  Country: US (occurrence: US)
  Receive Date: 20201121
  Receipt Date: 20201121
  Transmission Date: 20210114
  Serious: No
  Sender: FDA-Public Use
  Company Number: US-ANAZAOHEALTH CORPORATION-2096144

PATIENT
  Age: 63 Year
  Sex: Female
  Weight: 69.09 kg

DRUGS (18)
  1. TESTOSTERONE. [Concomitant]
     Active Substance: TESTOSTERONE
     Route: 058
     Dates: start: 20200512
  2. ESTRADIOL. [Concomitant]
     Active Substance: ESTRADIOL
     Route: 058
     Dates: start: 20190305
  3. TESTOSTERONE. [Concomitant]
     Active Substance: TESTOSTERONE
     Route: 058
     Dates: start: 20190801
  4. TESTOSTERONE. [Concomitant]
     Active Substance: TESTOSTERONE
     Route: 058
     Dates: start: 20180703
  5. ESTRADIOL. [Concomitant]
     Active Substance: ESTRADIOL
     Route: 058
     Dates: start: 20200512
  6. TESTOSTERONE. [Concomitant]
     Active Substance: TESTOSTERONE
     Route: 058
     Dates: start: 20200109
  7. TESTOSTERONE 100 MG PELLET [Suspect]
     Active Substance: TESTOSTERONE
     Route: 058
     Dates: start: 20200512
  8. ESTRADIOL. [Concomitant]
     Active Substance: ESTRADIOL
     Route: 058
     Dates: start: 20200109
  9. TESTOSTERONE. [Concomitant]
     Active Substance: TESTOSTERONE
     Route: 058
     Dates: start: 20190801
  10. TESTOSTERONE. [Concomitant]
     Active Substance: TESTOSTERONE
     Route: 058
     Dates: start: 20190305
  11. TESTOSTERONE. [Concomitant]
     Active Substance: TESTOSTERONE
     Route: 058
     Dates: start: 20181016
  12. ESTRADIOL. [Concomitant]
     Active Substance: ESTRADIOL
     Route: 058
     Dates: start: 20181016
  13. ESTRADIOL. [Concomitant]
     Active Substance: ESTRADIOL
     Route: 058
     Dates: start: 20190801
  14. TESTOSTERONE. [Concomitant]
     Active Substance: TESTOSTERONE
     Route: 058
     Dates: start: 20190305
  15. TESTOSTERONE. [Concomitant]
     Active Substance: TESTOSTERONE
     Route: 058
     Dates: start: 20180703
  16. TESTOSTERONE. [Concomitant]
     Active Substance: TESTOSTERONE
     Route: 058
     Dates: start: 20200109
  17. TESTOSTERONE. [Concomitant]
     Active Substance: TESTOSTERONE
     Route: 058
     Dates: start: 20181016
  18. ESTRADIOL. [Concomitant]
     Active Substance: ESTRADIOL
     Route: 058
     Dates: start: 20180703

REACTIONS (1)
  - Breast cancer [Unknown]

NARRATIVE: CASE EVENT DATE: 20200701
